FAERS Safety Report 18164201 (Version 1)
Quarter: 2020Q3

REPORT INFORMATION
  Report Type: Spontaneous
  Country: US (occurrence: US)
  Receive Date: 20200818
  Receipt Date: 20200818
  Transmission Date: 20201103
  Serious: Yes (Disabling, Other)
  Sender: FDA-Public Use
  Company Number: US-PURDUE-USA-2020-0160791

PATIENT
  Age: 63 Year
  Sex: Male

DRUGS (2)
  1. PERCOCET                           /00446701/ [Suspect]
     Active Substance: ACETAMINOPHEN\OXYCODONE HYDROCHLORIDE\OXYCODONE TEREPHTHALATE
     Indication: SKELETAL INJURY
     Dosage: UNK
     Route: 065
     Dates: start: 1996
  2. OXYCONTIN [Suspect]
     Active Substance: OXYCODONE HYDROCHLORIDE
     Indication: SKELETAL INJURY
     Dosage: UNK
     Route: 048
     Dates: start: 1996

REACTIONS (3)
  - Drug dependence [Unknown]
  - Vomiting [Unknown]
  - Disability [Unknown]

NARRATIVE: CASE EVENT DATE: 1996
